FAERS Safety Report 5162349-7 (Version None)
Quarter: 2006Q4

REPORT INFORMATION
  Report Type: 
  Country: None (occurrence: None)
  Receive Date: 20061130
  Receipt Date: 20061023
  Transmission Date: 20070319
  Serious: Yes (Other)
  Sender: FDA-Public Use
  Company Number: US-MERCK-0610USA12554

PATIENT
  Age: 59 Year
  Sex: Male

DRUGS (3)
  1. PROSCAR [Suspect]
     Indication: BENIGN PROSTATIC HYPERPLASIA
     Route: 048
     Dates: start: 20060829
  2. VERAPAMIL HYDROCHLORIDE [Concomitant]
     Route: 065
  3. FLOMAX [Suspect]
     Indication: BENIGN PROSTATIC HYPERPLASIA
     Route: 048
     Dates: start: 20060829, end: 20060830

REACTIONS (1)
  - ATRIAL FIBRILLATION [None]
